FAERS Safety Report 24182878 (Version 1)
Quarter: 2024Q3

REPORT INFORMATION
  Report Type: Spontaneous
  Country: NL (occurrence: NL)
  Receive Date: 20240807
  Receipt Date: 20240807
  Transmission Date: 20241016
  Serious: Yes (Death, Other)
  Sender: AMGEN
  Company Number: NL-AMGEN-NLDSP2024154649

PATIENT

DRUGS (1)
  1. BLINATUMOMAB [Suspect]
     Active Substance: BLINATUMOMAB
     Indication: Haematological malignancy
     Dosage: UNK
     Route: 065

REACTIONS (5)
  - Death [Fatal]
  - Acute myeloid leukaemia [Unknown]
  - Acute lymphocytic leukaemia [Unknown]
  - Non-Hodgkin^s lymphoma [Unknown]
  - Therapy partial responder [Unknown]
